FAERS Safety Report 7633454-8 (Version None)
Quarter: 2011Q3

REPORT INFORMATION
  Report Type: 
  Country: None (occurrence: None)
  Receive Date: 20110725
  Receipt Date: 20110321
  Transmission Date: 20111222
  Serious: Yes (Hospitalization, Other)
  Sender: FDA-Public Use
  Company Number: US-BRISTOL-MYERS SQUIBB COMPANY-15562747

PATIENT
  Age: 72 Year
  Sex: Male

DRUGS (1)
  1. SPRYCEL [Suspect]
     Indication: CHRONIC MYELOID LEUKAEMIA
     Dosage: DOSE REDUCED TO 50MG
     Route: 048
     Dates: start: 20110201

REACTIONS (2)
  - HAEMATOMA [None]
  - THROMBOCYTOPENIA [None]
